FAERS Safety Report 7189697-3 (Version None)
Quarter: 2010Q4

REPORT INFORMATION
  Report Type: 
  Country: None (occurrence: None)
  Receive Date: 20101223
  Receipt Date: 20101214
  Transmission Date: 20110411
  Serious: No
  Sender: FDA-Public Use
  Company Number: US-BIOGENIDEC-2010BI044008

PATIENT
  Age: 41 Year
  Sex: Female

DRUGS (5)
  1. TYSABRI [Suspect]
     Indication: MULTIPLE SCLEROSIS
     Route: 042
     Dates: start: 20101210
  2. TYSABRI [Suspect]
     Route: 042
     Dates: start: 20090202, end: 20100107
  3. TYSABRI [Suspect]
     Route: 042
     Dates: start: 20050201
  4. TYSABRI [Suspect]
     Route: 042
     Dates: start: 20061115, end: 20080424
  5. AVONEX [Concomitant]
     Indication: MULTIPLE SCLEROSIS
     Route: 030

REACTIONS (2)
  - OROPHARYNGEAL PAIN [None]
  - PYREXIA [None]
